FAERS Safety Report 17044492 (Version 1)
Quarter: 2019Q4

REPORT INFORMATION
  Report Type: Spontaneous
  Country: US (occurrence: US)
  Receive Date: 20191017
  Receipt Date: 20191017
  Transmission Date: 20200122
  Serious: Yes (Disabling, Other)
  Sender: FDA-Public Use
  Company Number: None

PATIENT

DRUGS (1)
  1. VALSARTAN HYDROCHLOROTHIAZIDE 160MG/12.5MG [Suspect]
     Active Substance: HYDROCHLOROTHIAZIDE\VALSARTAN
     Indication: HYPERTENSION
     Route: 048
     Dates: start: 1985

REACTIONS (7)
  - Road traffic accident [None]
  - Balance disorder [None]
  - Rash [None]
  - Middle insomnia [None]
  - Blood pressure decreased [None]
  - Urticaria [None]
  - Yellow skin [None]

NARRATIVE: CASE EVENT DATE: 20190306
